FAERS Safety Report 17605610 (Version 1)
Quarter: 2020Q1

REPORT INFORMATION
  Report Type: Spontaneous
  Country: US (occurrence: US)
  Receive Date: 20200331
  Receipt Date: 20200331
  Transmission Date: 20200409
  Serious: Yes (Other)
  Sender: FDA-Public Use
  Company Number: NVSC2020US088170

PATIENT
  Age: 35 Year
  Sex: Male

DRUGS (1)
  1. PAZOPANIB [Suspect]
     Active Substance: PAZOPANIB
     Indication: EPITHELIOID SARCOMA RECURRENT
     Dosage: UNK
     Route: 065

REACTIONS (4)
  - Urinary tract obstruction [Recovered/Resolved]
  - Abdominal pain [Unknown]
  - Urine output decreased [Recovered/Resolved]
  - Acute kidney injury [Recovered/Resolved]
